FAERS Safety Report 22126069 (Version 1)
Quarter: 2023Q1

REPORT INFORMATION
  Report Type: Spontaneous
  Country: US (occurrence: US)
  Receive Date: 20230322
  Receipt Date: 20230322
  Transmission Date: 20230418
  Serious: No
  Sender: FDA-Public Use
  Company Number: US-ALLERGAN-2229829US

PATIENT
  Age: 75 Year
  Sex: Female
  Weight: 52.163 kg

DRUGS (4)
  1. LUMIGAN [Suspect]
     Active Substance: BIMATOPROST
     Indication: Glaucoma
     Dosage: 1 DF, QD
     Route: 047
     Dates: start: 202106
  2. DEVICE [Suspect]
     Active Substance: DEVICE
     Indication: Product used for unknown indication
     Dosage: UNK
     Dates: start: 20220426, end: 20220426
  3. DORZOLAMIDE [Suspect]
     Active Substance: DORZOLAMIDE
     Indication: Glaucoma
     Dosage: 2 GTT, BID
     Route: 047
     Dates: start: 202206
  4. Dorzolomide Timolol Preservative Free [Concomitant]
     Indication: Product used for unknown indication
     Dosage: UNK

REACTIONS (6)
  - Visual impairment [Not Recovered/Not Resolved]
  - Eyelid margin crusting [Recovered/Resolved]
  - Eye pruritus [Not Recovered/Not Resolved]
  - Ocular hyperaemia [Recovered/Resolved]
  - Product use complaint [Unknown]
  - Drug ineffective [Unknown]

NARRATIVE: CASE EVENT DATE: 20210601
